FAERS Safety Report 5801007-X (Version None)
Quarter: 2008Q3

REPORT INFORMATION
  Report Type: 
  Country: None (occurrence: None)
  Receive Date: 20080702
  Receipt Date: 20080624
  Transmission Date: 20090109
  Serious: Yes (Hospitalization)
  Sender: FDA-Public Use
  Company Number: 2008AL007510

PATIENT
  Age: 46 Year
  Sex: Male
  Weight: 102.5129 kg

DRUGS (1)
  1. DIGOXIN [Suspect]

REACTIONS (2)
  - OEDEMA PERIPHERAL [None]
  - THERAPEUTIC AGENT TOXICITY [None]
